FAERS Safety Report 18050575 (Version 1)
Quarter: 2020Q3

REPORT INFORMATION
  Report Type: Spontaneous
  Country: GB (occurrence: GB)
  Receive Date: 20200721
  Receipt Date: 20200721
  Transmission Date: 20201103
  Serious: Yes (Other)
  Sender: FDA-Public Use
  Company Number: GB-BRISTOL-MYERS SQUIBB COMPANY-BMS-2020-051341

PATIENT
  Sex: Male

DRUGS (6)
  1. INTERFERON BETA?1B [Suspect]
     Active Substance: INTERFERON BETA-1B
     Indication: CHRONIC MYELOID LEUKAEMIA
     Dosage: UNK
     Route: 065
     Dates: start: 20190513, end: 20200304
  2. IMATINIB. [Suspect]
     Active Substance: IMATINIB MESYLATE
     Indication: CHRONIC MYELOID LEUKAEMIA
     Dosage: UNK
     Route: 065
     Dates: start: 20181112, end: 20190225
  3. DASATINIB. [Suspect]
     Active Substance: DASATINIB
     Indication: CHRONIC MYELOID LEUKAEMIA
     Dosage: UNK
     Route: 065
     Dates: start: 20190311, end: 20190313
  4. BOSUTINIB [Suspect]
     Active Substance: BOSUTINIB
     Indication: CHRONIC MYELOID LEUKAEMIA
     Dosage: UNK
     Route: 065
     Dates: start: 20190409, end: 20190425
  5. NILOTINIB [Suspect]
     Active Substance: NILOTINIB
     Indication: CHRONIC MYELOID LEUKAEMIA
     Dosage: UNK
     Route: 065
     Dates: start: 20200311, end: 20200515
  6. PONATINIB [Suspect]
     Active Substance: PONATINIB
     Indication: CHRONIC MYELOID LEUKAEMIA
     Dosage: UNK
     Route: 065
     Dates: start: 20200603, end: 20200617

REACTIONS (3)
  - Myopathy toxic [Unknown]
  - Drug intolerance [Unknown]
  - Therapeutic response decreased [Unknown]
